FAERS Safety Report 14699649 (Version 5)
Quarter: 2019Q3

REPORT INFORMATION
  Report Type: Spontaneous
  Country: US (occurrence: US)
  Receive Date: 20180330
  Receipt Date: 20190701
  Transmission Date: 20191004
  Serious: Yes (Other)
  Sender: FDA-Public Use
  Company Number: US-GLAXOSMITHKLINE-US2018GSK054256

PATIENT
  Sex: Female

DRUGS (2)
  1. PREVACID [Suspect]
     Active Substance: LANSOPRAZOLE
     Indication: GASTROOESOPHAGEAL REFLUX DISEASE
     Dosage: 15 MG, QD
     Route: 065
  2. PREVACID [Suspect]
     Active Substance: LANSOPRAZOLE
     Indication: GASTROOESOPHAGEAL REFLUX DISEASE
     Dosage: 30 MG, QD
     Route: 048

REACTIONS (13)
  - Renal injury [Unknown]
  - Nephropathy [Unknown]
  - Renal impairment [Unknown]
  - Renal cyst [Unknown]
  - Blood creatinine increased [Unknown]
  - Haematuria [Unknown]
  - Chronic kidney disease [Unknown]
  - Kidney fibrosis [Unknown]
  - Pyelonephritis [Unknown]
  - Dysuria [Unknown]
  - Glomerular filtration rate decreased [Unknown]
  - Proteinuria [Unknown]
  - Hypertensive nephropathy [Unknown]
